FAERS Safety Report 17989579 (Version 1)
Quarter: 2020Q3

REPORT INFORMATION
  Report Type: Spontaneous
  Country: US (occurrence: US)
  Receive Date: 20200707
  Receipt Date: 20200707
  Transmission Date: 20201103
  Serious: Yes (Other)
  Sender: FDA-Public Use
  Company Number: None

PATIENT
  Age: 68 Year
  Sex: Male
  Weight: 113 kg

DRUGS (6)
  1. DEXAMETHASONE 8MG IVP DAILY [Concomitant]
     Dates: start: 20200628, end: 20200701
  2. AMIODARONE 200MG PO DAILY [Concomitant]
     Active Substance: AMIODARONE
     Dates: start: 20200627
  3. DEXAMETHASONE 6MG IVP DAILY [Concomitant]
     Dates: start: 20200701
  4. ASPIRIN 162MG PO DAILY [Concomitant]
     Dates: start: 20200627
  5. DEXMEDETOMIDINE IV DRIP [Concomitant]
     Dates: start: 20200628
  6. REMDESIVIR. [Suspect]
     Active Substance: REMDESIVIR
     Indication: COVID-19
     Route: 042
     Dates: start: 20200629, end: 20200703

REACTIONS (1)
  - Transaminases increased [None]

NARRATIVE: CASE EVENT DATE: 20200704
